FAERS Safety Report 17517108 (Version 1)
Quarter: 2020Q1

REPORT INFORMATION
  Report Type: Spontaneous
  Country: US (occurrence: US)
  Receive Date: 20200307
  Receipt Date: 20200307
  Transmission Date: 20200409
  Serious: Yes (Other)
  Sender: FDA-Public Use
  Company Number: None

PATIENT
  Age: 42 Year
  Sex: Female
  Weight: 102.6 kg

DRUGS (10)
  1. GLATIRAMER [Suspect]
     Active Substance: GLATIRAMER
     Indication: MULTIPLE SCLEROSIS
     Dosage: ?          OTHER FREQUENCY:3 TIMES PER WEEK;?
     Route: 058
     Dates: start: 20190516, end: 20200307
  2. TRAMADOL 50MG [Concomitant]
     Active Substance: TRAMADOL
  3. RANITIDINE. [Concomitant]
     Active Substance: RANITIDINE
  4. WELLBUTRIN [Concomitant]
     Active Substance: BUPROPION HYDROCHLORIDE
  5. FIORICET 50-300-40 [Concomitant]
  6. LORATADINE 10MG [Concomitant]
     Active Substance: LORATADINE
  7. ST. JOHNS WORT 300MG [Concomitant]
  8. VITAMIN D 2000 UNIT [Concomitant]
  9. FERROUS GLUCONATE 324MG [Concomitant]
  10. NAPROSYN [Concomitant]
     Active Substance: NAPROXEN

REACTIONS (1)
  - Disease progression [None]

NARRATIVE: CASE EVENT DATE: 20200307
